APPROVED DRUG PRODUCT: FINASTERIDE
Active Ingredient: FINASTERIDE
Strength: 1MG
Dosage Form/Route: TABLET;ORAL
Application: A207750 | Product #001 | TE Code: AB
Applicant: ALKEM LABORATORIES LTD
Approved: Jan 6, 2017 | RLD: No | RS: No | Type: RX